FAERS Safety Report 25611769 (Version 1)
Quarter: 2025Q3

REPORT INFORMATION
  Report Type: Report from Study
  Country: US (occurrence: US)
  Receive Date: 20250728
  Receipt Date: 20250728
  Transmission Date: 20251020
  Serious: Yes (Other)
  Sender: ALEXION PHARMACEUTICALS
  Company Number: US-AstraZeneca-CH-00916811A

PATIENT
  Age: 75 Year
  Sex: Female

DRUGS (1)
  1. ACALABRUTINIB [Suspect]
     Active Substance: ACALABRUTINIB
     Indication: Lymphoma
     Dosage: 100 MILLIGRAM, BID
     Dates: start: 20221218

REACTIONS (3)
  - Mental impairment [Unknown]
  - Fatigue [Unknown]
  - Emotional disorder [Unknown]
